FAERS Safety Report 23778066 (Version 3)
Quarter: 2024Q2

REPORT INFORMATION
  Report Type: Spontaneous
  Country: US (occurrence: US)
  Receive Date: 20240424
  Receipt Date: 20240510
  Transmission Date: 20240716
  Serious: Yes (Other)
  Sender: FDA-Public Use
  Company Number: US-PFIZER INC-202400091900

PATIENT
  Age: 64 Year
  Sex: Male

DRUGS (1)
  1. VELSIPITY [Suspect]
     Active Substance: ETRASIMOD ARGININE
     Dosage: 2 MG
     Route: 048

REACTIONS (7)
  - Rectal haemorrhage [Unknown]
  - Back pain [Unknown]
  - Haemangioma of liver [Unknown]
  - Hepatic cyst [Unknown]
  - Dyspepsia [Unknown]
  - Diarrhoea [Unknown]
  - Cholelithiasis [Unknown]
